FAERS Safety Report 15348013 (Version 1)
Quarter: 2018Q3

REPORT INFORMATION
  Report Type: Spontaneous
  Country: US (occurrence: US)
  Receive Date: 20180829
  Receipt Date: 20180829
  Transmission Date: 20181010
  Serious: No
  Sender: FDA-Public Use
  Company Number: None

PATIENT
  Age: 43 Year
  Sex: Male

DRUGS (1)
  1. EPCLUSA [Suspect]
     Active Substance: SOFOSBUVIR\VELPATASVIR
     Indication: HEPATITIS C VIRUS TEST
     Route: 048
     Dates: start: 20180627

REACTIONS (7)
  - Nightmare [None]
  - Tinnitus [None]
  - Migraine [None]
  - Fatigue [None]
  - Thinking abnormal [None]
  - Hypoacusis [None]
  - Disturbance in attention [None]

NARRATIVE: CASE EVENT DATE: 20180801
